FAERS Safety Report 21769897 (Version 2)
Quarter: 2022Q4

REPORT INFORMATION
  Report Type: Report from Study
  Country: CZ (occurrence: CZ)
  Receive Date: 20221223
  Receipt Date: 20221226
  Transmission Date: 20230113
  Serious: Yes (Hospitalization)
  Sender: FDA-Public Use
  Company Number: CZ-BRISTOL-MYERS SQUIBB COMPANY-2022-151483

PATIENT
  Age: 79 Year
  Sex: Female
  Weight: 92 kg

DRUGS (29)
  1. DARATUMUMAB [Suspect]
     Active Substance: DARATUMUMAB
     Indication: Plasma cell myeloma
     Route: 058
     Dates: start: 20220929
  2. DEXAMETHASONE [Suspect]
     Active Substance: DEXAMETHASONE
     Indication: Plasma cell myeloma
     Dosage: DRUG INTERRUPTED?MOST RECENT DOSE RECEIVED ON 25-NOV-2022
     Route: 048
     Dates: start: 20220929
  3. IBERDOMIDE [Suspect]
     Active Substance: IBERDOMIDE
     Indication: Plasma cell myeloma
     Dosage: DRUG INTERRUPTED?MOST RECENT DOSE RECEIVED ON 25-NOV-2022
     Route: 048
     Dates: start: 20220929
  4. IBERDOMIDE [Suspect]
     Active Substance: IBERDOMIDE
     Dosage: DRUG INTERRUPTED?MOST RECENT DOSE RECEIVED ON 25-NOV-2022
     Route: 048
     Dates: start: 20221125
  5. RAMIPRIL [Concomitant]
     Active Substance: RAMIPRIL
     Indication: Hypertension
     Dosage: 5 MG
     Route: 048
     Dates: start: 202201
  6. AMICLOTON [Concomitant]
     Indication: Hypertension
     Dosage: 2.5/25 MG
     Route: 048
     Dates: start: 202201
  7. ATENOLOL [Concomitant]
     Active Substance: ATENOLOL
     Indication: Hypertension
     Dosage: 50 MG
     Route: 048
     Dates: start: 202110
  8. DIOSMIN\HESPERIDIN [Concomitant]
     Active Substance: DIOSMIN\HESPERIDIN
     Indication: Peripheral venous disease
     Dosage: 500 MG
     Route: 048
     Dates: start: 2016
  9. ESCITALOPRAM [Concomitant]
     Active Substance: ESCITALOPRAM OXALATE
     Indication: Polyneuropathy
     Dosage: 5 MG
     Route: 048
     Dates: start: 202109
  10. LYRICA [Concomitant]
     Active Substance: PREGABALIN
     Indication: Polyneuropathy
     Dosage: 75 MG
     Route: 048
     Dates: start: 2018
  11. NOVALGINA [Concomitant]
     Active Substance: ACETAMINOPHEN\CAFFEINE
     Indication: Spinal pain
     Dosage: 500 MG?FREQUENCY : AD LIBITUM
     Route: 048
     Dates: start: 202109
  12. NOVALGINA [Concomitant]
     Active Substance: ACETAMINOPHEN\CAFFEINE
     Indication: Humerus fracture
     Dosage: 500 MG?FREQUENCY : PRN
     Route: 048
     Dates: start: 20221014
  13. ACETAMINOPHEN [Concomitant]
     Active Substance: ACETAMINOPHEN
     Indication: Spinal pain
     Dosage: 500 MG?FREQUENCY : AD LIBITUM
     Route: 048
     Dates: start: 202109
  14. ACETAMINOPHEN [Concomitant]
     Active Substance: ACETAMINOPHEN
     Indication: Prophylaxis
     Dosage: 1000 MG?FREQUENCY : PRN
     Route: 048
     Dates: start: 20220929
  15. RILMENIDINE [Concomitant]
     Active Substance: RILMENIDINE
     Indication: Hypertension
     Dosage: 1 MG
     Dates: start: 202110
  16. INSULIN ASPART [Concomitant]
     Active Substance: INSULIN ASPART
     Indication: Type 2 diabetes mellitus
     Dosage: 36-0-26 UNITS?FREQUENCY : AD LIBITUM
     Route: 058
     Dates: start: 201609
  17. CALCIUM CARBONATE [Concomitant]
     Active Substance: CALCIUM CARBONATE
     Indication: Prophylaxis
     Dosage: 500/400 MG/IU
     Route: 048
     Dates: start: 20221019
  18. BISULEPIN [Concomitant]
     Active Substance: BISULEPIN
     Indication: Erythema
     Dosage: 2 MG?FREQUENCY : PRN
     Route: 048
     Dates: start: 20221006
  19. NADROPARIN CALCIUM [Concomitant]
     Active Substance: NADROPARIN CALCIUM
     Indication: Prophylaxis
     Dosage: 0.8 ML
     Route: 058
     Dates: start: 20220929
  20. POTASSIUM CHLORIDE [Concomitant]
     Active Substance: POTASSIUM CHLORIDE
     Indication: Prophylaxis
     Dosage: 1 G
     Route: 048
     Dates: start: 20220824
  21. PANTOPRAZOLE SODIUM [Concomitant]
     Active Substance: PANTOPRAZOLE SODIUM
     Indication: Prophylaxis
     Dosage: 20 MG?FREQUENCY : PRN
     Route: 048
     Dates: start: 20220929
  22. VALACYCLOVIR HYDROCHLORIDE [Concomitant]
     Active Substance: VALACYCLOVIR HYDROCHLORIDE
     Indication: Prophylaxis
     Dosage: 500 MG
     Route: 048
     Dates: start: 20220929
  23. ZALDIAR [Concomitant]
     Active Substance: ACETAMINOPHEN\TRAMADOL HYDROCHLORIDE
     Indication: Spinal pain
     Dosage: 37.5/325 MG?FREQUENCY : PRN
     Route: 048
     Dates: start: 20220914
  24. ZALDIAR [Concomitant]
     Active Substance: ACETAMINOPHEN\TRAMADOL HYDROCHLORIDE
     Indication: Humerus fracture
     Dosage: 37.5/325 MG?FREQUENCY : PRN
     Route: 048
     Dates: start: 20221019
  25. FILGRASTIM [Concomitant]
     Active Substance: FILGRASTIM
     Indication: Product used for unknown indication
     Dosage: 48 UNITS?FREQUENCY : PRN
     Route: 058
     Dates: start: 20221118
  26. ZYRTEC [Concomitant]
     Active Substance: CETIRIZINE HYDROCHLORIDE
     Indication: Prophylaxis
     Dosage: 10 MG?FREQUENCY : PRN
     Route: 048
     Dates: start: 20220929
  27. COMIRNATY [Concomitant]
     Active Substance: TOZINAMERAN
     Indication: Prophylaxis
     Dates: start: 20210408
  28. COMIRNATY [Concomitant]
     Active Substance: TOZINAMERAN
     Dates: start: 20211109
  29. COMIRNATY [Concomitant]
     Active Substance: TOZINAMERAN
     Dates: start: 20210317

REACTIONS (1)
  - COVID-19 [Recovered/Resolved]

NARRATIVE: CASE EVENT DATE: 20221209
